FAERS Safety Report 20621652 (Version 1)
Quarter: 2022Q1

REPORT INFORMATION
  Report Type: Spontaneous
  Country: US (occurrence: None)
  Receive Date: 20220322
  Receipt Date: 20220322
  Transmission Date: 20220423
  Serious: Yes (Other)
  Sender: FDA-Public Use
  Company Number: None

PATIENT
  Sex: Male

DRUGS (11)
  1. STELARA [Suspect]
     Active Substance: USTEKINUMAB
     Indication: Crohn^s disease
     Dosage: FREQUENCY: EVERY 8 WEEKS
     Route: 058
     Dates: start: 20200611
  2. AMITRIPYLIN [Concomitant]
  3. ATORVASTATIN [Concomitant]
     Active Substance: ATORVASTATIN
  4. CYCLOBENZAPRINE HYDROCHLORIDE [Concomitant]
     Active Substance: CYCLOBENZAPRINE HYDROCHLORIDE
  5. FOLIC ACID [Concomitant]
     Active Substance: FOLIC ACID
  6. METHOTREXATE [Concomitant]
     Active Substance: METHOTREXATE
  7. PANTOPRAZOLE TAB [Concomitant]
  8. STELARA [Concomitant]
     Active Substance: USTEKINUMAB
  9. TOPOMAX TAB [Concomitant]
  10. TOPIRAMATE TAB [Concomitant]
  11. TRAZODONE TAB [Concomitant]

REACTIONS (4)
  - Petit mal epilepsy [None]
  - Diarrhoea [None]
  - Abdominal pain [None]
  - Impaired quality of life [None]
